FAERS Safety Report 21359567 (Version 1)
Quarter: 2022Q3

REPORT INFORMATION
  Report Type: Spontaneous
  Country: US (occurrence: None)
  Receive Date: 20220921
  Receipt Date: 20220921
  Transmission Date: 20221027
  Serious: Yes (unspecified)
  Sender: FDA-Public Use
  Company Number: None

PATIENT
  Age: 28 Year
  Sex: Female
  Weight: 42 kg

DRUGS (3)
  1. FERRLECIT [Suspect]
     Active Substance: SODIUM FERRIC GLUCONATE COMPLEX
     Indication: Iron deficiency anaemia
     Dosage: FREQUENCY : ONCE;?
     Route: 041
     Dates: start: 20220920, end: 20220920
  2. Diphenhydramine 25 mg IVP [Concomitant]
     Dates: start: 20220920, end: 20220920
  3. Hydrocortisone 100 mg IVP [Concomitant]
     Dates: start: 20220920, end: 20220920

REACTIONS (1)
  - Rash [None]

NARRATIVE: CASE EVENT DATE: 20220920
